FAERS Safety Report 6677645-1 (Version None)
Quarter: 2010Q2

REPORT INFORMATION
  Report Type: 
  Country: None (occurrence: None)
  Receive Date: 20100412
  Receipt Date: 20100104
  Transmission Date: 20101027
  Serious: No
  Sender: FDA-Public Use
  Company Number: US-ALEXION-A200901078

PATIENT
  Sex: Male

DRUGS (4)
  1. SOLIRIS [Suspect]
     Indication: PAROXYSMAL NOCTURNAL HAEMOGLOBINURIA
     Dosage: 600 MG, QW X4
     Route: 042
     Dates: start: 20091027, end: 20090101
  2. SOLIRIS [Suspect]
     Dosage: 900 MG, UNK
     Route: 042
     Dates: start: 20091208
  3. COUMADIN [Concomitant]
     Dosage: 5 MG, QD
     Route: 048
  4. AMBIEN [Concomitant]
     Dosage: 10 MG, QD PRN
     Route: 048

REACTIONS (3)
  - CHROMATURIA [None]
  - OESOPHAGEAL SPASM [None]
  - RETCHING [None]
